FAERS Safety Report 25794063 (Version 2)
Quarter: 2025Q4

REPORT INFORMATION
  Report Type: Spontaneous
  Country: CN (occurrence: CN)
  Receive Date: 20250912
  Receipt Date: 20251010
  Transmission Date: 20260117
  Serious: Yes (Life-Threatening)
  Sender: EMD SERONO INC
  Company Number: CN-Merck Healthcare KGaA-2025044830

PATIENT
  Age: 28 Year
  Sex: Female

DRUGS (1)
  1. CETROTIDE [Suspect]
     Active Substance: CETRORELIX ACETATE
     Indication: Ovulation induction
     Dates: start: 20250827, end: 20250828

REACTIONS (5)
  - Dizziness [Recovering/Resolving]
  - Vision blurred [Recovering/Resolving]
  - Laryngeal oedema [Recovering/Resolving]
  - Injection site erythema [Recovering/Resolving]
  - Injection site swelling [Recovering/Resolving]

NARRATIVE: CASE EVENT DATE: 20250827
